FAERS Safety Report 6255220-0 (Version None)
Quarter: 2009Q3

REPORT INFORMATION
  Report Type: 
  Country: None (occurrence: None)
  Receive Date: 20090702
  Receipt Date: 20090518
  Transmission Date: 20100115
  Serious: No
  Sender: FDA-Public Use
  Company Number: US-BAYER-200922968NA

PATIENT
  Age: 48 Year
  Sex: Male
  Weight: 104 kg

DRUGS (3)
  1. ULTRAVIST 370 [Suspect]
     Indication: COMPUTERISED TOMOGRAM ABDOMEN
     Dosage: TOTAL DAILY DOSE: 120 ML  UNIT DOSE: 500 ML
     Route: 042
     Dates: start: 20090515, end: 20090515
  2. ULTRAVIST 370 [Suspect]
     Route: 048
     Dates: start: 20090515, end: 20090515
  3. LORTAB [Concomitant]

REACTIONS (1)
  - PRURITUS [None]
